FAERS Safety Report 8775463 (Version 5)
Quarter: 2012Q4

REPORT INFORMATION
  Report Type: Report from Study
  Country: US (occurrence: US)
  Receive Date: 20120909
  Receipt Date: 20121009
  Transmission Date: 20130627
  Serious: Yes (Other)
  Sender: FDA-Public Use
  Company Number: US-ABBOTT-12P-163-0975843-00

PATIENT
  Age: 50 Year
  Sex: Female

DRUGS (2)
  1. HUMIRA [Suspect]
     Indication: ANKYLOSING SPONDYLITIS
     Route: 058
     Dates: start: 201001, end: 20120827
  2. ANTIBIOTICS [Concomitant]
     Indication: PRODUCT USED FOR UNKNOWN INDICATION

REACTIONS (7)
  - Ankylosing spondylitis [Unknown]
  - Surgery [Recovered/Resolved]
  - Peripheral coldness [Unknown]
  - Skin discolouration [Unknown]
  - Wound [Unknown]
  - Wound complication [Unknown]
  - Oedema peripheral [Unknown]
